FAERS Safety Report 7203859-8 (Version None)
Quarter: 2010Q4

REPORT INFORMATION
  Report Type: 
  Country: None (occurrence: None)
  Receive Date: 20101230
  Receipt Date: 20101221
  Transmission Date: 20110411
  Serious: Yes (Hospitalization)
  Sender: FDA-Public Use
  Company Number: CH-JNJFOC-20101206836

PATIENT
  Age: 83 Year
  Sex: Male

DRUGS (13)
  1. HALDOL [Suspect]
     Indication: RESTLESSNESS
     Route: 065
  2. HALDOL [Suspect]
     Route: 065
  3. TRAMAL [Concomitant]
     Indication: PAIN
     Route: 065
  4. ARICEPT [Concomitant]
     Route: 065
  5. PAROXETINE HCL [Concomitant]
     Route: 065
  6. DAFALGAN [Concomitant]
     Route: 065
  7. DAFALGAN [Concomitant]
     Route: 065
  8. ASPIRIN [Concomitant]
     Route: 065
  9. TRAZODONE HCL [Concomitant]
     Route: 065
  10. SURMONTIL [Concomitant]
     Route: 065
  11. XARELTO [Concomitant]
     Route: 065
  12. CALCIUM-SANDOZ D3 [Concomitant]
     Route: 065
  13. POTASSIUM CHLORIDE [Concomitant]
     Route: 065

REACTIONS (4)
  - COGNITIVE DISORDER [None]
  - GASTROINTESTINAL HAEMORRHAGE [None]
  - SOMNOLENCE [None]
  - TACHYCARDIA [None]
